FAERS Safety Report 11428389 (Version 1)
Quarter: 2015Q3

REPORT INFORMATION
  Report Type: Spontaneous
  Country: US (occurrence: US)
  Receive Date: 20150828
  Receipt Date: 20150828
  Transmission Date: 20151125
  Serious: No
  Sender: FDA-Public Use
  Company Number: US-ROCHE-1116014

PATIENT
  Sex: Female

DRUGS (3)
  1. PEGASYS [Suspect]
     Active Substance: PEGINTERFERON ALFA-2A
     Indication: HEPATITIS C
     Route: 058
     Dates: start: 201208, end: 201301
  2. RIBAVIRIN. [Suspect]
     Active Substance: RIBAVIRIN
     Indication: HEPATITIS C
     Dosage: DIVIDED DOSE 600/600
     Route: 065
     Dates: start: 201208, end: 201301
  3. VICTRELIS [Suspect]
     Active Substance: BOCEPREVIR
     Indication: HEPATITIS C
     Route: 065
     Dates: end: 201301

REACTIONS (11)
  - Dysphagia [Unknown]
  - Hypoaesthesia [Unknown]
  - Dysgeusia [Unknown]
  - Vulvovaginal burning sensation [Unknown]
  - Alopecia [Unknown]
  - Therapeutic product ineffective [Unknown]
  - Nausea [Unknown]
  - Weight decreased [Unknown]
  - Rhinorrhoea [Unknown]
  - Balance disorder [Unknown]
  - Sinusitis [Unknown]
